FAERS Safety Report 11184602 (Version 2)
Quarter: 2015Q3

REPORT INFORMATION
  Report Type: Spontaneous
  Country: US (occurrence: US)
  Receive Date: 20150612
  Receipt Date: 20150714
  Transmission Date: 20151125
  Serious: Yes (Other)
  Sender: FDA-Public Use
  Company Number: US-JNJFOC-20150603666

PATIENT
  Sex: Female
  Weight: 72.58 kg

DRUGS (15)
  1. LEXAPRO [Concomitant]
     Active Substance: ESCITALOPRAM OXALATE
     Indication: DEPRESSION
     Dosage: CANNOT REMEMBER START DATE
     Route: 065
  2. RESTASIS [Concomitant]
     Active Substance: CYCLOSPORINE
     Indication: DRY EYE
     Dosage: CANNOT REMEMBER START DATE
     Route: 065
  3. DICLOFENAC [Concomitant]
     Active Substance: DICLOFENAC
     Indication: RHEUMATOID ARTHRITIS
     Dosage: STARTED APP 10 YEARS BEFORE
     Route: 065
  4. GEODON [Concomitant]
     Active Substance: ZIPRASIDONE HYDROCHLORIDE\ZIPRASIDONE MESYLATE
     Indication: DEPRESSION
     Dosage: CANNOT REMEMBER START DATE
     Route: 065
  5. FOLIC ACID. [Concomitant]
     Active Substance: FOLIC ACID
     Indication: RHEUMATOID ARTHRITIS
     Dosage: STARTED APPROXIMATELY 10 YEARS BEFORE
     Route: 065
  6. XANAX SR [Concomitant]
     Indication: DEPRESSION
     Dosage: CANNOT REMEMBER START DATE
     Route: 065
  7. ASPIRIN. [Concomitant]
     Active Substance: ASPIRIN
     Route: 065
  8. VALACYCLOVIR [Concomitant]
     Active Substance: VALACYCLOVIR HYDROCHLORIDE
     Indication: ANTIVIRAL PROPHYLAXIS
     Dosage: CANNOT REMEMBER START DATE
     Route: 065
  9. FISH OIL [Concomitant]
     Active Substance: FISH OIL
     Indication: GENERAL PHYSICAL CONDITION
     Dosage: CANNOT REMEMBER START DATE
     Route: 065
  10. REMICADE [Suspect]
     Active Substance: INFLIXIMAB
     Indication: RHEUMATOID ARTHRITIS
     Dosage: STARTED APPROXIMATELY 10 YEARS BEFORE.
     Route: 042
     Dates: start: 200506
  11. OXYCODONE [Concomitant]
     Active Substance: OXYCODONE
     Indication: RHEUMATOID ARTHRITIS
     Dosage: STARTED APPROXIMATELY 10 YEARS BEFORE
     Route: 065
  12. FLAXSEED [Concomitant]
     Active Substance: FLAX SEED
     Indication: GENERAL PHYSICAL CONDITION
     Dosage: CANNOT REMEMBER START DATE
     Route: 065
  13. METHOTREXATE [Suspect]
     Active Substance: METHOTREXATE
     Indication: RHEUMATOID ARTHRITIS
     Dosage: STARTED APP 10 YEARS
     Route: 065
  14. WELLBUTRIN SR [Concomitant]
     Active Substance: BUPROPION HYDROCHLORIDE
     Indication: DEPRESSION
     Dosage: CANNOT REMEMBER START DATE
     Route: 065
  15. CALCIUM [Concomitant]
     Active Substance: CALCIUM
     Indication: GENERAL PHYSICAL CONDITION
     Dosage: CANNOT REMEMBER START DATE
     Route: 065

REACTIONS (4)
  - Drug effect decreased [Not Recovered/Not Resolved]
  - Hearing impaired [Unknown]
  - Basal cell carcinoma [Recovering/Resolving]
  - Laziness [Unknown]

NARRATIVE: CASE EVENT DATE: 2013
